FAERS Safety Report 4584442-X (Version None)
Quarter: 2005Q1

REPORT INFORMATION
  Report Type: 
  Country: None (occurrence: None)
  Receive Date: 20050125
  Receipt Date: 20041109
  Transmission Date: 20050727
  Serious: No
  Sender: FDA-Public Use
  Company Number: USA041183640

PATIENT
  Age: 79 Year
  Sex: Female

DRUGS (4)
  1. FORTEO [Suspect]
     Dates: start: 20041105
  2. ALDACTAZIDE [Concomitant]
  3. APO-METOPROLOL (METOPROLOL TARTRATE) [Concomitant]
  4. MULTI-VITAMIN [Concomitant]

REACTIONS (2)
  - BLOOD PRESSURE DECREASED [None]
  - VISUAL ACUITY REDUCED [None]
